FAERS Safety Report 8248246-9 (Version None)
Quarter: 2012Q1

REPORT INFORMATION
  Report Type: 
  Country: None (occurrence: None)
  Receive Date: 20120330
  Receipt Date: 20120319
  Transmission Date: 20120608
  Serious: Yes (Death, Other)
  Sender: FDA-Public Use
  Company Number: GB-ROCHE-1038575

PATIENT
  Sex: Female
  Weight: 66 kg

DRUGS (3)
  1. METHOTREXATE [Concomitant]
  2. STEROID (NAME UNKNOWN) [Concomitant]
  3. MABTHERA [Suspect]
     Indication: PRODUCT USED FOR UNKNOWN INDICATION
     Dosage: LAST DOSE PRIOR TO SAE: 26/MARY/2011
     Dates: start: 20110512

REACTIONS (2)
  - CEREBROVASCULAR DISORDER [None]
  - LUNG CANCER METASTATIC [None]
